FAERS Safety Report 20782067 (Version 1)
Quarter: 2022Q2

REPORT INFORMATION
  Report Type: Report from Study
  Country: CN (occurrence: None)
  Receive Date: 20220504
  Receipt Date: 20220504
  Transmission Date: 20220721
  Serious: Yes (Hospitalization)
  Sender: FDA-Public Use
  Company Number: CN-ROCHE-2859996

PATIENT
  Age: 44 Year
  Sex: Male

DRUGS (14)
  1. RITUXIMAB [Suspect]
     Active Substance: RITUXIMAB
     Indication: Chronic lymphocytic leukaemia
     Dosage: THERAPY DURATION: 1 HOUR 22 MINS
     Route: 042
     Dates: start: 20210616, end: 20210616
  2. RITUXIMAB [Suspect]
     Active Substance: RITUXIMAB
     Dosage: THERAPY DURATION: 2 HOURS 34 MINS
     Route: 042
     Dates: start: 20210616, end: 20210616
  3. RITUXIMAB [Suspect]
     Active Substance: RITUXIMAB
     Dosage: THERAPY DURATION: 3 HOURS 16 MINS
     Route: 042
     Dates: start: 20210616, end: 20210617
  4. CYCLOPHOSPHAMIDE [Suspect]
     Active Substance: CYCLOPHOSPHAMIDE
     Indication: Chronic lymphocytic leukaemia
     Dosage: THERAPY DURATION: 28 MINS
     Route: 042
     Dates: start: 20210617, end: 20210617
  5. CYCLOPHOSPHAMIDE [Suspect]
     Active Substance: CYCLOPHOSPHAMIDE
     Dosage: THERAPY DURATION: 31 MINS
     Route: 042
     Dates: start: 20210617, end: 20210617
  6. CYCLOPHOSPHAMIDE [Suspect]
     Active Substance: CYCLOPHOSPHAMIDE
     Dosage: THERAPY DURATION: 29 MINS
     Route: 042
     Dates: start: 20210618, end: 20210618
  7. FLUDARABINE [Suspect]
     Active Substance: FLUDARABINE PHOSPHATE
     Indication: Chronic lymphocytic leukaemia
     Dosage: THERAPY DURATION : 33 MINS
     Route: 042
     Dates: start: 20210617, end: 20210617
  8. FLUDARABINE [Suspect]
     Active Substance: FLUDARABINE PHOSPHATE
     Dosage: THERAPY DURATION : 20 MINS
     Route: 042
     Dates: start: 20210617, end: 20210617
  9. FLUDARABINE [Suspect]
     Active Substance: FLUDARABINE PHOSPHATE
     Dosage: THERAPY DURATION : 29 MINS
     Route: 042
     Dates: start: 20210618, end: 20210618
  10. AMILORIDE HYDROCHLORIDE [Concomitant]
     Active Substance: AMILORIDE HYDROCHLORIDE
     Indication: Polyuria
     Route: 048
     Dates: start: 20210616, end: 20210621
  11. SODIUM BICARBONATE [Concomitant]
     Active Substance: SODIUM BICARBONATE
     Route: 048
     Dates: start: 20210616, end: 20210621
  12. SODIUM BICARBONATE [Concomitant]
     Active Substance: SODIUM BICARBONATE
     Route: 042
     Dates: start: 20210710, end: 20210710
  13. FEBUXOSTAT [Concomitant]
     Active Substance: FEBUXOSTAT
     Route: 048
     Dates: start: 20210616, end: 20210621
  14. PROMETHAZINE HYDROCHLORIDE [Concomitant]
     Active Substance: PROMETHAZINE HYDROCHLORIDE
     Route: 042
     Dates: start: 20210616, end: 20210616

REACTIONS (2)
  - Platelet count decreased [Recovered/Resolved]
  - Epstein-Barr virus infection [Recovered/Resolved]

NARRATIVE: CASE EVENT DATE: 20210617
